FAERS Safety Report 21114719 (Version 3)
Quarter: 2022Q3

REPORT INFORMATION
  Report Type: Spontaneous
  Country: IN (occurrence: IN)
  Receive Date: 20220721
  Receipt Date: 20220923
  Transmission Date: 20221027
  Serious: Yes (Hospitalization, Other)
  Sender: FDA-Public Use
  Company Number: IN-PFIZER INC-202200452398

PATIENT
  Age: 58 Year
  Sex: Female

DRUGS (2)
  1. LORLATINIB [Suspect]
     Active Substance: LORLATINIB
     Indication: Lung neoplasm malignant
     Dosage: 75 MG, 1X/DAY
     Route: 048
     Dates: end: 202206
  2. LORLATINIB [Suspect]
     Active Substance: LORLATINIB
     Dosage: 75 MG, 1X/DAY
     Route: 048
     Dates: start: 202206

REACTIONS (9)
  - Hypersensitivity [Unknown]
  - Aortic arteriosclerosis [Unknown]
  - Pulmonary oedema [Unknown]
  - Blood glucose increased [Unknown]
  - Blood creatinine increased [Unknown]
  - Neoplasm progression [Recovering/Resolving]
  - Pulmonary septal thickening [Unknown]
  - Cardiomegaly [Unknown]
  - Dental caries [Unknown]

NARRATIVE: CASE EVENT DATE: 20220318
